FAERS Safety Report 4280180-1 (Version None)
Quarter: 2004Q1

REPORT INFORMATION
  Report Type: 
  Country: None (occurrence: None)
  Receive Date: 20040128
  Receipt Date: 20030529
  Transmission Date: 20041129
  Serious: Yes (Other)
  Sender: FDA-Public Use
  Company Number: AU-GLAXOSMITHKLINE-B0302434A

PATIENT
  Age: 63 Year
  Sex: Female
  Weight: 70 kg

DRUGS (5)
  1. AVANDIA [Suspect]
     Indication: DIABETES MELLITUS NON-INSULIN-DEPENDENT
     Dosage: 8MG PER DAY
     Route: 048
     Dates: start: 20030401, end: 20030603
  2. SIMVASTATIN [Concomitant]
     Indication: HYPERCHOLESTEROLAEMIA
     Dosage: 10MG PER DAY
     Route: 048
     Dates: start: 20021015
  3. METFORMIN HCL [Concomitant]
     Indication: DIABETES MELLITUS
     Dosage: 100MG PER DAY
     Route: 048
     Dates: start: 19990715
  4. CLOPIDOGREL [Concomitant]
     Indication: CEREBROVASCULAR ACCIDENT PROPHYLAXIS
     Dosage: 75MG PER DAY
     Route: 048
     Dates: start: 20021212
  5. COVERSYL [Concomitant]
     Indication: HYPERTENSION
     Route: 048
     Dates: start: 20010630

REACTIONS (1)
  - HEADACHE [None]
